FAERS Safety Report 8901624 (Version 1)
Quarter: 2012Q4

REPORT INFORMATION
  Report Type: Spontaneous
  Country: US (occurrence: None)
  Receive Date: 20121108
  Receipt Date: 20121108
  Transmission Date: 20130627
  Serious: Yes (Hospitalization)
  Sender: FDA-Public Use
  Company Number: None

PATIENT
  Age: 68 Year
  Sex: Female
  Weight: 63.5 kg

DRUGS (1)
  1. SULFAMETHOXAZOLE\TRIMETHOPRIM [Suspect]
     Indication: SINUSITIS BACTERIAL
     Dosage: take 1 tablet  twice a day for 14   po
     Route: 048
     Dates: start: 20121012, end: 20121018

REACTIONS (11)
  - Rash [None]
  - Vomiting [None]
  - Nausea [None]
  - Pyrexia [None]
  - Dehydration [None]
  - Atrial fibrillation [None]
  - Renal failure [None]
  - Arthralgia [None]
  - Abasia [None]
  - Oedema peripheral [None]
  - Malaise [None]
